FAERS Safety Report 7761222-5 (Version None)
Quarter: 2011Q3

REPORT INFORMATION
  Report Type: 
  Country: None (occurrence: None)
  Receive Date: 20110920
  Receipt Date: 20110909
  Transmission Date: 20111222
  Serious: Yes (Other)
  Sender: FDA-Public Use
  Company Number: PHHY2011NL80740

PATIENT

DRUGS (3)
  1. ITRACONAZOLE [Suspect]
     Indication: PROPHYLAXIS
     Dosage: UNK
  2. VINCRISTINE [Interacting]
     Indication: ACUTE LYMPHOCYTIC LEUKAEMIA
     Dosage: 1.5 MG/M2, UNK
  3. VINCRISTINE [Interacting]
     Dosage: 2 MG/M2, UNK

REACTIONS (4)
  - NEUROTOXICITY [None]
  - CONSTIPATION [None]
  - DRUG INTERACTION [None]
  - NEUROPATHY PERIPHERAL [None]
